FAERS Safety Report 21062342 (Version 2)
Quarter: 2023Q4

REPORT INFORMATION
  Report Type: Spontaneous
  Country: JP (occurrence: JP)
  Receive Date: 20220711
  Receipt Date: 20231031
  Transmission Date: 20240110
  Serious: Yes (Other)
  Sender: FDA-Public Use
  Company Number: JP-TAKEDA-2021TJP059821

PATIENT
  Age: 71 Year
  Sex: Female

DRUGS (7)
  1. NINLARO [Suspect]
     Active Substance: IXAZOMIB CITRATE
     Indication: Plasma cell myeloma
     Dosage: 4 MILLIGRAM, 1/WEEK
     Route: 048
     Dates: start: 20190709
  2. NINLARO [Suspect]
     Active Substance: IXAZOMIB CITRATE
     Dosage: 3 MILLIGRAM, 1/WEEK
     Route: 048
  3. NINLARO [Suspect]
     Active Substance: IXAZOMIB CITRATE
     Dosage: 2.3 MILLIGRAM
     Route: 048
  4. LENALIDOMIDE [Suspect]
     Active Substance: LENALIDOMIDE
     Indication: Plasma cell myeloma
     Dosage: 10 MILLIGRAM, QD
     Route: 048
  5. LENADEX [Suspect]
     Active Substance: DEXAMETHASONE ACETATE
     Indication: Plasma cell myeloma
     Dosage: UNK
     Route: 048
  6. LENADEX [Suspect]
     Active Substance: DEXAMETHASONE ACETATE
     Dosage: 40 MILLIGRAM, 1/WEEK
     Route: 048
  7. LENADEX [Suspect]
     Active Substance: DEXAMETHASONE ACETATE
     Dosage: 20 MILLIGRAM, 1/WEEK
     Route: 048

REACTIONS (8)
  - Neutrophil count decreased [Recovered/Resolved]
  - Neutrophil count decreased [Recovered/Resolved]
  - Cataract [Recovered/Resolved]
  - Decreased appetite [Recovered/Resolved]
  - Nausea [Recovered/Resolved]
  - Weight decreased [Recovered/Resolved]
  - Diarrhoea [Unknown]
  - Vomiting [Recovered/Resolved]

NARRATIVE: CASE EVENT DATE: 20191114
